FAERS Safety Report 4324635-X (Version None)
Quarter: 2004Q1

REPORT INFORMATION
  Report Type: 
  Country: None (occurrence: None)
  Receive Date: 20040323
  Receipt Date: 20040317
  Transmission Date: 20041129
  Serious: Yes (Hospitalization)
  Sender: FDA-Public Use
  Company Number: DEWYE569009FEB04

PATIENT
  Age: 67 Year
  Sex: Male

DRUGS (2)
  1. VENLAFAXINE HCL [Suspect]
     Indication: DEPRESSION
     Dosage: 75 MG 2X PER 1 DAY, ORAL
     Route: 048
  2. VALPROATE SODIUM [Concomitant]

REACTIONS (2)
  - INTESTINAL HAEMORRHAGE [None]
  - POLYP [None]
